FAERS Safety Report 7321544-9 (Version None)
Quarter: 2011Q1

REPORT INFORMATION
  Report Type: 
  Country: None (occurrence: None)
  Receive Date: 20110228
  Receipt Date: 20100326
  Transmission Date: 20110831
  Serious: No
  Sender: FDA-Public Use
  Company Number: A0852714A

PATIENT
  Age: 89 Year
  Sex: Female

DRUGS (1)
  1. VALTREX [Suspect]
     Dosage: 2G FIVE TIMES PER DAY
     Route: 048
     Dates: start: 20100323, end: 20100325

REACTIONS (2)
  - MEDICATION ERROR [None]
  - OVERDOSE [None]
